FAERS Safety Report 4971881-8 (Version None)
Quarter: 2006Q2

REPORT INFORMATION
  Report Type: 
  Country: None (occurrence: None)
  Receive Date: 20060413
  Receipt Date: 20060404
  Transmission Date: 20061013
  Serious: Yes (Other)
  Sender: FDA-Public Use
  Company Number: US-MERCK-0604USA00467

PATIENT
  Age: 71 Year
  Sex: Male

DRUGS (5)
  1. COSOPT [Suspect]
     Indication: GLAUCOMA
     Route: 047
     Dates: start: 20040101
  2. ATENOLOL [Concomitant]
     Route: 065
  3. ATIVAN [Concomitant]
     Route: 065
  4. REMERON [Concomitant]
     Route: 065
  5. ASPIRIN [Concomitant]
     Route: 065

REACTIONS (4)
  - EYELID MARGIN CRUSTING [None]
  - EYELID OEDEMA [None]
  - LACRIMATION INCREASED [None]
  - SCAB [None]
